FAERS Safety Report 25484668 (Version 1)
Quarter: 2025Q2

REPORT INFORMATION
  Report Type: Spontaneous
  Country: US (occurrence: None)
  Receive Date: 20250627
  Receipt Date: 20250627
  Transmission Date: 20250716
  Serious: Yes (Other)
  Sender: FDA-CTU
  Company Number: None

PATIENT
  Sex: Female

DRUGS (1)
  1. ETHINYL ESTRADIOL\NORELGESTROMIN [Suspect]
     Active Substance: ETHINYL ESTRADIOL\NORELGESTROMIN
     Dosage: 35 UGM/HR - MICROGRAMS PER HOUR  WEEKLY TRANSDERMAL
     Route: 062
     Dates: start: 20250613, end: 20250626

REACTIONS (1)
  - Rash [None]

NARRATIVE: CASE EVENT DATE: 20250626
